FAERS Safety Report 9371488 (Version 1)
Quarter: 2013Q2

REPORT INFORMATION
  Report Type: Spontaneous
  Country: US (occurrence: None)
  Receive Date: 20130626
  Receipt Date: 20130626
  Transmission Date: 20140414
  Serious: Yes (Other)
  Sender: FDA-Public Use
  Company Number: None

PATIENT
  Age: 57 Year
  Sex: Female
  Weight: 90.72 kg

DRUGS (1)
  1. THERA TEARS [Suspect]
     Indication: CORNEAL ABRASION
     Dosage: ONCE EACH DATE
     Route: 047
     Dates: start: 20130614, end: 20130614

REACTIONS (6)
  - Hypersensitivity [None]
  - Eye swelling [None]
  - Swelling face [None]
  - Erythema [None]
  - Erythema [None]
  - Feeling hot [None]
